FAERS Safety Report 4633748-4 (Version None)
Quarter: 2005Q2

REPORT INFORMATION
  Report Type: 
  Country: None (occurrence: None)
  Receive Date: 20050331
  Receipt Date: 20040114
  Transmission Date: 20051028
  Serious: Yes (Other)
  Sender: FDA-Public Use
  Company Number: 200410224BCC

PATIENT
  Age: 26 Year
  Sex: Male
  Weight: 77.1115 kg

DRUGS (4)
  1. ALEVE (CAPLET) [Suspect]
     Indication: HEADACHE
     Dosage: 440 MG, ONCE, ORAL
     Route: 048
     Dates: start: 20040109
  2. ALEVE (CAPLET) [Suspect]
     Indication: HEADACHE
     Dosage: 440 MG, ONCE, ORAL
     Route: 048
     Dates: start: 20040112
  3. LEXAPROC [Concomitant]
  4. XANAX [Concomitant]

REACTIONS (1)
  - HAEMATOCHEZIA [None]
